FAERS Safety Report 6493393-5 (Version None)
Quarter: 2009Q4

REPORT INFORMATION
  Report Type: 
  Country: None (occurrence: None)
  Receive Date: 20091211
  Receipt Date: 20091211
  Transmission Date: 20100525
  Serious: Yes (Other)
  Sender: FDA-Public Use
  Company Number: None

PATIENT
  Age: 80 Year
  Sex: Male
  Weight: 75 kg

DRUGS (2)
  1. GEODON [Suspect]
     Indication: AGITATION
     Dosage: 10 MG X1 INTRAMUSCULAR, 1 DOSE ONLY
     Route: 030
     Dates: start: 20090828
  2. GEODON [Suspect]
     Indication: CONFUSIONAL STATE
     Dosage: 10 MG X1 INTRAMUSCULAR, 1 DOSE ONLY
     Route: 030
     Dates: start: 20090828

REACTIONS (5)
  - CARDIAC ARREST [None]
  - ELECTROCARDIOGRAM QT PROLONGED [None]
  - ENCEPHALOPATHY [None]
  - TORSADE DE POINTES [None]
  - VENTRICULAR FIBRILLATION [None]
